FAERS Safety Report 8237103-X (Version None)
Quarter: 2012Q1

REPORT INFORMATION
  Report Type: 
  Country: None (occurrence: None)
  Receive Date: 20120327
  Receipt Date: 20120315
  Transmission Date: 20120608
  Serious: No
  Sender: FDA-Public Use
  Company Number: US-B.I. PHARMACEUTICALS,INC./RIDGEFIELD-2012-BP-04972BP

PATIENT
  Age: 89 Year
  Sex: Female

DRUGS (7)
  1. POTASSIUM [Concomitant]
     Indication: ATRIAL FIBRILLATION
     Dosage: 10 MEQ
     Route: 048
  2. PRADAXA [Suspect]
     Indication: ATRIAL FIBRILLATION
     Dosage: 300 MG
     Route: 048
     Dates: start: 20111201
  3. GABAPENTIN [Concomitant]
     Indication: ARTHRITIS
     Route: 048
  4. TOPROL-XL [Concomitant]
     Indication: HYPERTENSION
     Dosage: 100 MG
     Route: 048
  5. TYLENOL [Concomitant]
     Indication: ARTHRITIS
     Route: 048
  6. LISINOPRIL [Concomitant]
     Indication: HYPERTENSION
     Dosage: 5 MG
     Route: 048
  7. FUROSEMIDE [Concomitant]
     Indication: HYPERTENSION
     Dosage: 20 MG
     Route: 048

REACTIONS (2)
  - BACK PAIN [None]
  - ARTHRALGIA [None]
